FAERS Safety Report 10180749 (Version 1)
Quarter: 2014Q2

REPORT INFORMATION
  Report Type: Spontaneous
  Country: US (occurrence: US)
  Receive Date: 20140519
  Receipt Date: 20140519
  Transmission Date: 20141212
  Serious: No
  Sender: FDA-Public Use
  Company Number: US-AMGEN INC.-USASP2014014088

PATIENT
  Age: 64 Year
  Sex: Female

DRUGS (9)
  1. PROLIA [Suspect]
     Indication: OSTEOPOROSIS POSTMENOPAUSAL
     Dosage: UNK
     Route: 065
     Dates: start: 2013
  2. PERCOCET                           /00446701/ [Concomitant]
     Dosage: 5 MG, AS NECESSARY
  3. NEXIUM                             /01479302/ [Concomitant]
     Dosage: 40 MG, BID
  4. LIPITOR [Concomitant]
     Dosage: 40 MG, QD
  5. SYNTHROID [Concomitant]
     Dosage: 0.05 MG, QD
  6. VITAMIN D                          /00107901/ [Concomitant]
     Dosage: 2000 IU, QD
  7. CALCIUM [Concomitant]
     Dosage: 1500 MG, QD
  8. ONE A DAY                          /02262701/ [Concomitant]
  9. METAMUCIL                          /00029101/ [Concomitant]
     Dosage: 3 DF, QD

REACTIONS (10)
  - Limb discomfort [Not Recovered/Not Resolved]
  - Musculoskeletal discomfort [Not Recovered/Not Resolved]
  - Feeling abnormal [Not Recovered/Not Resolved]
  - Limb discomfort [Not Recovered/Not Resolved]
  - Gait disturbance [Not Recovered/Not Resolved]
  - Back pain [Not Recovered/Not Resolved]
  - Insomnia [Not Recovered/Not Resolved]
  - Arthralgia [Not Recovered/Not Resolved]
  - Musculoskeletal pain [Not Recovered/Not Resolved]
  - Pain in extremity [Not Recovered/Not Resolved]
